FAERS Safety Report 8224480-9 (Version None)
Quarter: 2012Q1

REPORT INFORMATION
  Report Type: 
  Country: None (occurrence: None)
  Receive Date: 20120321
  Receipt Date: 20120312
  Transmission Date: 20120608
  Serious: Yes (Other)
  Sender: FDA-Public Use
  Company Number: PHHY2012SE022810

PATIENT
  Age: 49 Year
  Sex: Female

DRUGS (11)
  1. ASPIRIN [Concomitant]
  2. EZETIMIBE [Concomitant]
  3. CLOZAPINE [Suspect]
     Dosage: 100 MG, UNK
     Route: 048
  4. CLOZAPINE [Suspect]
     Dosage: 100 MG, UNK
     Route: 048
  5. METOPROLOL SUCCINATE [Concomitant]
  6. SPIRIVA [Concomitant]
  7. NOVOMIX [Concomitant]
  8. METFORMIN HCL [Concomitant]
  9. PROPAVAN [Concomitant]
  10. CLOZAPINE [Suspect]
     Dosage: 100 MG, UNK
     Route: 048
  11. CLOMIPRAMINE HCL [Concomitant]

REACTIONS (7)
  - DEMENTIA [None]
  - FALL [None]
  - SOMNOLENCE [None]
  - DIABETES MELLITUS [None]
  - BLOOD PRESSURE DECREASED [None]
  - INCONTINENCE [None]
  - PSYCHOTIC DISORDER [None]
